FAERS Safety Report 8172844-4 (Version None)
Quarter: 2012Q1

REPORT INFORMATION
  Report Type: 
  Country: None (occurrence: None)
  Receive Date: 20120229
  Receipt Date: 20120229
  Transmission Date: 20120608
  Serious: Yes (Other)
  Sender: FDA-Public Use
  Company Number: None

PATIENT
  Age: 14 Year
  Sex: Female
  Weight: 58.967 kg

DRUGS (3)
  1. COGENTIN [Concomitant]
  2. ZYVOX [Suspect]
     Indication: URINARY TRACT INFECTION
     Dates: start: 20120205, end: 20120215
  3. HALDOL [Concomitant]

REACTIONS (2)
  - DYSTONIA [None]
  - CONDITION AGGRAVATED [None]
